FAERS Safety Report 6894018-7 (Version None)
Quarter: 2010Q3

REPORT INFORMATION
  Report Type: 
  Country: None (occurrence: None)
  Receive Date: 20100802
  Receipt Date: 20100713
  Transmission Date: 20110219
  Serious: Yes (Other)
  Sender: FDA-Public Use
  Company Number: GB-RANBAXY-2010RR-36135

PATIENT
  Age: 42 Year
  Sex: Male
  Weight: 105.6 kg

DRUGS (8)
  1. METFORMIN HCL [Suspect]
     Indication: TYPE 2 DIABETES MELLITUS
     Dosage: 500 MG, BID
     Dates: start: 20100423
  2. METFORMIN HCL [Suspect]
     Dosage: 1 G, BID
  3. VICTOZA [Suspect]
     Dosage: 0.6 MG, QD
     Dates: start: 20100423
  4. VICTOZA [Suspect]
     Dosage: 0.6 MG, QD
     Route: 058
     Dates: start: 20100324, end: 20100330
  5. VICTOZA [Suspect]
     Dosage: 1.2 MG, QD
     Route: 058
     Dates: start: 20100331, end: 20100418
  6. VICTOZA [Suspect]
     Dosage: 1.2 MG, QD
     Dates: end: 20100506
  7. AVANDAMET [Concomitant]
  8. SITAGLIPTIN [Concomitant]

REACTIONS (7)
  - ABDOMINAL DISCOMFORT [None]
  - ABDOMINAL PAIN [None]
  - BREATH ODOUR [None]
  - DIARRHOEA [None]
  - FLATULENCE [None]
  - NAUSEA [None]
  - VOMITING [None]
